FAERS Safety Report 7546711-0 (Version None)
Quarter: 2011Q2

REPORT INFORMATION
  Report Type: 
  Country: None (occurrence: None)
  Receive Date: 20110614
  Receipt Date: 20110610
  Transmission Date: 20111010
  Serious: Yes (Hospitalization)
  Sender: FDA-Public Use
  Company Number: A0869046A

PATIENT
  Age: 52 Year
  Sex: Female

DRUGS (1)
  1. AVANDIA [Suspect]
     Indication: DIABETES MELLITUS
     Route: 048
     Dates: start: 20100201, end: 20100204

REACTIONS (13)
  - BREAST PAIN [None]
  - CHEST PAIN [None]
  - PALPITATIONS [None]
  - PAIN [None]
  - BREAST SWELLING [None]
  - CARDIOVASCULAR DISORDER [None]
  - MYOCARDIAL INFARCTION [None]
  - CARDIAC FAILURE CONGESTIVE [None]
  - CHEST DISCOMFORT [None]
  - ANGINA PECTORIS [None]
  - INJURY [None]
  - DYSPNOEA [None]
  - LIMB DISCOMFORT [None]
